FAERS Safety Report 4486507-X (Version None)
Quarter: 2004Q4

REPORT INFORMATION
  Report Type: 
  Country: None (occurrence: None)
  Receive Date: 20041021
  Receipt Date: 20041014
  Transmission Date: 20050328
  Serious: Yes (Other)
  Sender: FDA-Public Use
  Company Number: 2004239144RU

PATIENT
  Sex: Male

DRUGS (1)
  1. ZYVOX [Suspect]
     Indication: POST PROCEDURAL COMPLICATION
     Dosage: 600 MG, BID, IV
     Route: 042
     Dates: start: 20040818, end: 20040820

REACTIONS (3)
  - BRONCHOSPASM [None]
  - DYSPNOEA [None]
  - TREMOR [None]
